FAERS Safety Report 21762867 (Version 1)
Quarter: 2022Q4

REPORT INFORMATION
  Report Type: Spontaneous
  Country: US (occurrence: US)
  Receive Date: 20221221
  Receipt Date: 20221221
  Transmission Date: 20230113
  Serious: No
  Sender: FDA-Public Use
  Company Number: US-BAYER-2022P031530

PATIENT
  Age: 27 Year
  Sex: Male

DRUGS (2)
  1. KOVALTRY [Suspect]
     Active Substance: ANTIHEMOPHILIC FACTOR, HUMAN RECOMBINANT
     Indication: Soft tissue disorder
     Dosage: 2000 U, BID (TO TREAT THE EVENTS)
     Route: 042
     Dates: start: 202211
  2. KOVALTRY [Suspect]
     Active Substance: ANTIHEMOPHILIC FACTOR, HUMAN RECOMBINANT
     Indication: Factor VIII deficiency
     Dosage: 2000 U, QD
     Route: 042

REACTIONS (3)
  - Peripheral swelling [None]
  - Contusion [None]
  - Skin warm [None]

NARRATIVE: CASE EVENT DATE: 20221101
